FAERS Safety Report 14702765 (Version 2)
Quarter: 2018Q2

REPORT INFORMATION
  Report Type: Spontaneous
  Country: US (occurrence: US)
  Receive Date: 20180402
  Receipt Date: 20180501
  Transmission Date: 20180711
  Serious: Yes (Other)
  Sender: FDA-Public Use
  Company Number: US-ROCHE-2097777

PATIENT
  Sex: Female

DRUGS (4)
  1. VALCYTE [Suspect]
     Active Substance: VALGANCICLOVIR HYDROCHLORIDE
     Indication: PRODUCT USED FOR UNKNOWN INDICATION
     Dosage: DOSES UP AND DOWN
     Route: 048
     Dates: start: 201509, end: 201705
  2. PREDNISONE. [Concomitant]
     Active Substance: PREDNISONE
  3. VALCYTE [Suspect]
     Active Substance: VALGANCICLOVIR HYDROCHLORIDE
     Route: 065
     Dates: start: 201712
  4. PROGRAF [Concomitant]
     Active Substance: TACROLIMUS\TACROLIMUS ANHYDROUS

REACTIONS (4)
  - Gait disturbance [Unknown]
  - Encephalitis [Unknown]
  - Immunosuppression [Unknown]
  - Systemic lupus erythematosus [Unknown]
